FAERS Safety Report 9839908 (Version 2)
Quarter: 2014Q1

REPORT INFORMATION
  Report Type: Report from Study
  Country: JP (occurrence: JP)
  Receive Date: 20140124
  Receipt Date: 20140312
  Transmission Date: 20141002
  Serious: Yes (Hospitalization, Other)
  Sender: FDA-Public Use
  Company Number: JP-AMGEN-JPNCT2014004517

PATIENT
  Age: 64 Year
  Sex: Female
  Weight: 45 kg

DRUGS (7)
  1. DARBEPOETIN ALFA [Suspect]
     Indication: NEPHROGENIC ANAEMIA
     Dosage: 120 MUG, UNK
     Route: 058
     Dates: start: 20111209
  2. ATELEC [Concomitant]
     Dosage: UNK
     Route: 048
  3. MICARDIS [Concomitant]
     Dosage: UNK
     Route: 048
  4. TANKARU [Concomitant]
     Indication: CONGENITAL CYSTIC KIDNEY DISEASE
     Dosage: UNK
     Route: 048
  5. LASIX                              /00032601/ [Concomitant]
     Indication: CONGENITAL CYSTIC KIDNEY DISEASE
     Dosage: UNK
     Route: 048
  6. SODIUM BICARBONATE [Concomitant]
     Indication: CONGENITAL CYSTIC KIDNEY DISEASE
     Dosage: UNK
     Route: 048
  7. ONEALFA [Concomitant]
     Indication: CONGENITAL CYSTIC KIDNEY DISEASE
     Dosage: UNK
     Route: 048

REACTIONS (7)
  - Renal cyst infection [Recovered/Resolved]
  - Renal cyst haemorrhage [Recovered/Resolved]
  - Renal cyst infection [Recovered/Resolved]
  - Renal cyst infection [Recovered/Resolved]
  - Renal cyst infection [Recovered/Resolved]
  - Faeces discoloured [Recovered/Resolved]
  - Renal cyst infection [Recovered/Resolved]
